FAERS Safety Report 12938333 (Version 1)
Quarter: 2016Q4

REPORT INFORMATION
  Report Type: Spontaneous
  Country: US (occurrence: US)
  Receive Date: 20161114
  Receipt Date: 20161114
  Transmission Date: 20170207
  Serious: No
  Sender: FDA-Public Use
  Company Number: US-ACADIA PHARMACEUTICALS INC.-ACA-2016-000264

PATIENT
  Sex: Male
  Weight: 75.74 kg

DRUGS (4)
  1. NUPLAZID [Suspect]
     Active Substance: PIMAVANSERIN TARTRATE
     Indication: PARKINSON^S DISEASE PSYCHOSIS
     Dosage: 34 MG, QD
     Route: 048
     Dates: start: 2016, end: 2016
  2. SEROQUEL [Concomitant]
     Active Substance: QUETIAPINE FUMARATE
     Dosage: 25 MG IN AFTERNOON AND 50MG AT HS
     Dates: start: 2016
  3. SEROQUEL [Concomitant]
     Active Substance: QUETIAPINE FUMARATE
     Indication: PRODUCT USED FOR UNKNOWN INDICATION
     Dosage: 25 MG IN THE AFTERNOON AND 50 MG AT NIGHT
     Route: 048
     Dates: end: 2016
  4. ATIVAN [Concomitant]
     Active Substance: LORAZEPAM
     Indication: PRODUCT USED FOR UNKNOWN INDICATION
     Dosage: UNK

REACTIONS (5)
  - Aggression [Unknown]
  - Dementia [Unknown]
  - Restlessness [Unknown]
  - Abnormal behaviour [Unknown]
  - Constipation [Unknown]

NARRATIVE: CASE EVENT DATE: 2016
